FAERS Safety Report 12331684 (Version 1)
Quarter: 2016Q2

REPORT INFORMATION
  Report Type: Spontaneous
  Country: CN (occurrence: CN)
  Receive Date: 20160504
  Receipt Date: 20160504
  Transmission Date: 20160815
  Serious: Yes (Other)
  Sender: FDA-Public Use
  Company Number: CN-PFIZER INC-2016228933

PATIENT
  Age: 46 Year
  Sex: Female
  Weight: 63 kg

DRUGS (13)
  1. DEXTROSE. [Concomitant]
     Active Substance: DEXTROSE
     Indication: VOMITING
     Dosage: 5 MG, 1X/DAY FOR 4 DAYS
     Route: 041
     Dates: start: 20151130, end: 20151203
  2. GLUCOSE [Concomitant]
     Active Substance: DEXTROSE
     Indication: VEHICLE SOLUTION USE
     Dosage: 250 ML, 1X/DAY
     Route: 041
     Dates: start: 20151130, end: 20151203
  3. DEXAMETHASONE SODIUM PHOSPHATE. [Concomitant]
     Active Substance: DEXAMETHASONE SODIUM PHOSPHATE
     Indication: PROPHYLAXIS
     Dosage: 5 MG, 1X/DAY
     Route: 040
     Dates: start: 20151130, end: 20151201
  4. PHARMORUBICIN [Suspect]
     Active Substance: EPIRUBICIN
     Indication: BREAST CANCER
     Dosage: 80 MG, 1X/DAY
     Route: 041
     Dates: start: 20151130, end: 20151201
  5. FLUOROURACIL. [Suspect]
     Active Substance: FLUOROURACIL
     Indication: BREAST CANCER
     Dosage: 800 MG, 1X/DAY
     Route: 041
     Dates: start: 20151130, end: 20151130
  6. SODIUM CHLORIDE. [Concomitant]
     Active Substance: SODIUM CHLORIDE
     Indication: VEHICLE SOLUTION USE
     Dosage: 50 ML, 1X/DAY
     Route: 041
     Dates: start: 20151130, end: 20151130
  7. TROPISETRON HYDROCHLORIDE [Concomitant]
     Active Substance: TROPISETRON HYDROCHLORIDE
     Indication: PROPHYLAXIS
     Dosage: 5 MG, 1X/DAY
     Route: 041
     Dates: start: 20151130, end: 20151203
  8. PROMETHAZINE HYDROCHLORIDE. [Concomitant]
     Active Substance: PROMETHAZINE HYDROCHLORIDE
     Indication: PROPHYLAXIS
     Dosage: 25 MG, 1X/DAY
     Route: 030
     Dates: start: 20151130, end: 20151201
  9. CYCLOPHOSPHAMIDE. [Suspect]
     Active Substance: CYCLOPHOSPHAMIDE
     Indication: BREAST CANCER
     Dosage: 800 MG, 1X/DAY
     Route: 041
     Dates: start: 20151130, end: 20151130
  10. LANSOPRAZOLE. [Concomitant]
     Active Substance: LANSOPRAZOLE
     Indication: PROPHYLAXIS
     Dosage: 30 MG, 1X/DAY
     Route: 041
     Dates: start: 20151130, end: 20151203
  11. SODIUM CHLORIDE. [Concomitant]
     Active Substance: SODIUM CHLORIDE
     Dosage: 250 ML, 1X/DAY
     Route: 041
     Dates: start: 20151130, end: 20151130
  12. SODIUM CHLORIDE. [Concomitant]
     Active Substance: SODIUM CHLORIDE
     Dosage: 250 ML, 1X/DAY
     Route: 041
     Dates: start: 20151130, end: 20151201
  13. DEXRAZOXANE. [Concomitant]
     Active Substance: DEXRAZOXANE
     Indication: DRUG TOXICITY PROPHYLAXIS
     Dosage: 750 MG, 1X/DAY
     Route: 041
     Dates: start: 20151130, end: 20151201

REACTIONS (9)
  - Abdominal pain [Recovering/Resolving]
  - Chest discomfort [Recovering/Resolving]
  - Decreased appetite [Recovering/Resolving]
  - Headache [Recovering/Resolving]
  - Diarrhoea [Recovering/Resolving]
  - Fatigue [Recovering/Resolving]
  - Dizziness [Recovering/Resolving]
  - Vomiting [Recovered/Resolved]
  - Nausea [Recovered/Resolved]

NARRATIVE: CASE EVENT DATE: 20151130
